FAERS Safety Report 22530501 (Version 1)
Quarter: 2023Q2

REPORT INFORMATION
  Report Type: Spontaneous
  Country: US (occurrence: US)
  Receive Date: 20230607
  Receipt Date: 20230607
  Transmission Date: 20230722
  Serious: Yes (Hospitalization)
  Sender: FDA-Public Use
  Company Number: US-002147023-NVSC2023US126979

PATIENT
  Sex: Female

DRUGS (1)
  1. NADOLOL [Suspect]
     Active Substance: NADOLOL
     Indication: Product used for unknown indication
     Dosage: UNK
     Route: 065

REACTIONS (1)
  - Palpitations [Unknown]
